FAERS Safety Report 23306415 (Version 1)
Quarter: 2023Q4

REPORT INFORMATION
  Report Type: Spontaneous
  Country: PL (occurrence: PL)
  Receive Date: 20231218
  Receipt Date: 20231218
  Transmission Date: 20240109
  Serious: Yes (Hospitalization)
  Sender: FDA-Public Use
  Company Number: PL-MENARINI-PL-MEN-091977

PATIENT

DRUGS (19)
  1. ORITAVANCIN [Suspect]
     Active Substance: ORITAVANCIN
     Indication: Soft tissue infection
     Dosage: 1200 MILLIGRAM, SINGLE
     Route: 042
     Dates: start: 20231201, end: 20231201
  2. LEVOTHYROXINE SODIUM [Concomitant]
     Active Substance: LEVOTHYROXINE SODIUM
     Indication: Product used for unknown indication
     Dosage: 0.1 MILLIGRAM, QD
     Route: 048
     Dates: start: 20231020
  3. TORSEMIDE [Concomitant]
     Active Substance: TORSEMIDE
     Indication: Product used for unknown indication
     Dosage: 0.01 GRAM, QD
     Route: 048
     Dates: start: 20231020
  4. VANCOMYCIN [Concomitant]
     Active Substance: VANCOMYCIN
     Indication: Soft tissue infection
     Dosage: UNK
     Route: 042
     Dates: start: 20231023
  5. PIPERACILLIN AND TAZOBACTAM [Concomitant]
     Active Substance: PIPERACILLIN SODIUM\TAZOBACTAM SODIUM
     Indication: Soft tissue infection
     Dosage: UNK
     Route: 042
     Dates: start: 20231019
  6. RANITIDINE HYDROCHLORIDE [Concomitant]
     Active Substance: RANITIDINE HYDROCHLORIDE
     Indication: Product used for unknown indication
     Dosage: 0.04 GRAM, QD
     Route: 048
     Dates: start: 20231020
  7. ASPICONT [ACETYLSALICYLIC ACID] [Concomitant]
     Indication: Product used for unknown indication
     Dosage: 0.075 GRAM, QD
     Route: 048
     Dates: start: 20231019
  8. WARFARIN [Concomitant]
     Active Substance: WARFARIN
     Indication: Product used for unknown indication
     Dosage: 0.003 GRAM, QD
     Route: 048
     Dates: start: 20231019
  9. NEUROVIT [THIAMINE HYDROCHLORIDE] [Concomitant]
     Indication: Product used for unknown indication
     Dosage: ONE TABLET ONCE DAILY
     Route: 048
     Dates: start: 20231020
  10. ARGADOPIN [Concomitant]
     Indication: Product used for unknown indication
     Dosage: 0.3 GRAM, QD
     Route: 048
     Dates: start: 20231020
  11. POTASSIUM CHLORIDE [Concomitant]
     Active Substance: POTASSIUM CHLORIDE
     Indication: Product used for unknown indication
     Dosage: 0.6 GRAM, Q12H
     Route: 048
     Dates: start: 20231020
  12. GLUCOPHAGE XR [Concomitant]
     Active Substance: METFORMIN HYDROCHLORIDE
     Indication: Product used for unknown indication
     Dosage: 1 GRAM, QD
     Route: 048
     Dates: start: 20231019
  13. GLICLAZIDE [Concomitant]
     Active Substance: GLICLAZIDE
     Indication: Product used for unknown indication
     Dosage: 0.06 GRAM, QD
     Route: 048
     Dates: start: 20231020
  14. ROSUVASTATIN CALCIUM [Concomitant]
     Active Substance: ROSUVASTATIN CALCIUM
     Indication: Product used for unknown indication
     Dosage: 0.03 GRAM, QD
     Route: 048
     Dates: start: 20231019
  15. DIGOXIN TEVA [Concomitant]
     Indication: Product used for unknown indication
     Dosage: STOP ON WEDNESDAY AND SATURDAY
     Route: 048
     Dates: start: 20231020
  16. JARDIANCE [Concomitant]
     Active Substance: EMPAGLIFLOZIN
     Indication: Product used for unknown indication
     Dosage: 0.01 GRAM, QD
     Route: 048
     Dates: start: 20231020
  17. EPLERENONE [Concomitant]
     Active Substance: EPLERENONE
     Indication: Product used for unknown indication
     Dosage: 0.025 GRAM, QD
     Route: 048
     Dates: start: 20231019
  18. METOPROLOL SUCCINATE [Concomitant]
     Active Substance: METOPROLOL SUCCINATE
     Indication: Product used for unknown indication
     Dosage: 0.075 IN THE MORNING, 0.05 G IN THE EVENING
     Route: 048
     Dates: start: 20231019
  19. LOSARTAN POTASSIUM [Concomitant]
     Active Substance: LOSARTAN POTASSIUM
     Indication: Product used for unknown indication
     Dosage: 0.025 GRAM, Q12H
     Route: 048
     Dates: start: 20231019

REACTIONS (5)
  - Paraesthesia [Unknown]
  - Asthenia [Unknown]
  - Procalcitonin increased [Recovering/Resolving]
  - C-reactive protein increased [Recovering/Resolving]
  - Chills [Unknown]

NARRATIVE: CASE EVENT DATE: 20231201
